FAERS Safety Report 11111828 (Version 1)
Quarter: 2015Q2

REPORT INFORMATION
  Report Type: Spontaneous
  Country: DE (occurrence: DE)
  Receive Date: 20150514
  Receipt Date: 20150514
  Transmission Date: 20150821
  Serious: Yes (Death, Hospitalization, Other)
  Sender: FDA-Public Use
  Company Number: DE-ROCHE-1517123

PATIENT
  Age: 45 Year
  Sex: Male

DRUGS (1)
  1. ROACTEMRA [Suspect]
     Active Substance: TOCILIZUMAB
     Indication: RHEUMATOID ARTHRITIS
     Route: 058
     Dates: start: 2009

REACTIONS (9)
  - Swelling [Unknown]
  - Back pain [Unknown]
  - Movement disorder [Unknown]
  - Septic shock [Fatal]
  - Multi-organ failure [Fatal]
  - Feeling hot [Unknown]
  - Hypertension [Unknown]
  - Erythema [Unknown]
  - Pain in extremity [Unknown]

NARRATIVE: CASE EVENT DATE: 20140815
